FAERS Safety Report 23293938 (Version 1)
Quarter: 2023Q4

REPORT INFORMATION
  Report Type: Spontaneous
  Country: US (occurrence: US)
  Receive Date: 20231213
  Receipt Date: 20231213
  Transmission Date: 20240109
  Serious: No
  Sender: FDA-Public Use
  Company Number: US-BAYER-2023A175969

PATIENT
  Age: 47 Year
  Sex: Male

DRUGS (1)
  1. ADEMPAS [Suspect]
     Active Substance: RIOCIGUAT
     Indication: Pulmonary arterial hypertension
     Dosage: 2 MG, TID
     Route: 048
     Dates: start: 20221021, end: 20231205

REACTIONS (5)
  - Drug intolerance [None]
  - Head discomfort [None]
  - Headache [None]
  - Sinus congestion [None]
  - Alanine aminotransferase increased [None]
